FAERS Safety Report 9162810 (Version 1)
Quarter: 2013Q1

REPORT INFORMATION
  Report Type: Spontaneous
  Country: US (occurrence: US)
  Receive Date: 20130314
  Receipt Date: 20130314
  Transmission Date: 20140127
  Serious: Yes (Hospitalization, Other)
  Sender: FDA-Public Use
  Company Number: US-BAYER-2013-013370

PATIENT
  Age: 83 Year
  Sex: Female
  Weight: 87.09 kg

DRUGS (4)
  1. XARELTO [Suspect]
     Indication: CEREBROVASCULAR ACCIDENT PROPHYLAXIS
     Dosage: 15 MG, QD
     Route: 048
     Dates: start: 20121130, end: 20130119
  2. XARELTO [Interacting]
     Indication: ATRIAL FIBRILLATION
  3. XARELTO [Interacting]
     Indication: CEREBROVASCULAR ACCIDENT PROPHYLAXIS
  4. ACETYLSALICYLIC ACID({=100 MG) [Interacting]
     Indication: ANTIPLATELET THERAPY
     Dosage: 81 MG, UNK

REACTIONS (3)
  - Central nervous system haemorrhage [Recovering/Resolving]
  - Fall [Unknown]
  - Haemorrhage intracranial [Recovering/Resolving]
